FAERS Safety Report 7207295-X (Version None)
Quarter: 2011Q1

REPORT INFORMATION
  Report Type: 
  Country: None (occurrence: None)
  Receive Date: 20110103
  Receipt Date: 20101223
  Transmission Date: 20110831
  Serious: Yes (Hospitalization)
  Sender: FDA-Public Use
  Company Number: NL-JNJFOC-20101207833

PATIENT
  Sex: Male
  Weight: 72 kg

DRUGS (9)
  1. INFLIXIMAB, RECOMBINANT [Suspect]
     Route: 042
  2. HYDROXOCOBALAMIN [Concomitant]
     Indication: ANAEMIA
  3. METHOTREXATE [Suspect]
     Indication: ILL-DEFINED DISORDER
  4. SIMVASTATIN [Concomitant]
     Indication: PROPHYLAXIS
  5. INFLIXIMAB, RECOMBINANT [Suspect]
     Indication: RHEUMATOID ARTHRITIS
     Route: 042
  6. FOLIC ACID [Concomitant]
     Indication: PROPHYLAXIS
  7. ARTHROTEC [Concomitant]
     Indication: PAIN
  8. GALANTAMINE HYDROBROMIDE [Concomitant]
  9. NEXIUM [Concomitant]
     Indication: GASTROINTESTINAL DISORDER THERAPY

REACTIONS (3)
  - EJECTION FRACTION DECREASED [None]
  - ATRIAL FIBRILLATION [None]
  - CARDIAC FAILURE [None]
